FAERS Safety Report 23044828 (Version 3)
Quarter: 2024Q2

REPORT INFORMATION
  Report Type: Spontaneous
  Country: US (occurrence: US)
  Receive Date: 20231009
  Receipt Date: 20240503
  Transmission Date: 20240716
  Serious: No
  Sender: FDA-Public Use
  Company Number: US-PFIZER INC-PV202300154129

PATIENT
  Age: 64 Year
  Sex: Female

DRUGS (3)
  1. IBRANCE [Suspect]
     Active Substance: PALBOCICLIB
     Indication: Breast cancer female
     Dosage: 125 MG, CYCLIC (TAKE 1 PO DAILY WITH FOOD, TAKE FOR 21 DAYS, OFF FOR 7 DAYS AND REPEAT)
     Dates: start: 20221117
  2. IBRANCE [Suspect]
     Active Substance: PALBOCICLIB
     Indication: Breast abscess
     Dosage: 100 MG
  3. LETROZOLE [Concomitant]
     Active Substance: LETROZOLE
     Dosage: UNK
     Dates: start: 20221117

REACTIONS (1)
  - Tumour marker increased [Unknown]
